FAERS Safety Report 14680460 (Version 1)
Quarter: 2018Q1

REPORT INFORMATION
  Report Type: Spontaneous
  Country: CN (occurrence: CN)
  Receive Date: 20180326
  Receipt Date: 20180326
  Transmission Date: 20180509
  Serious: Yes (Hospitalization, Other)
  Sender: FDA-Public Use
  Company Number: CN-ASTELLAS-2018US014705

PATIENT
  Age: 1 Year
  Sex: Female

DRUGS (2)
  1. TACROLIMUS. [Suspect]
     Active Substance: TACROLIMUS
     Dosage: 0.25 MG, EVERY 12 HOURS
     Route: 065
     Dates: start: 20161013, end: 20161111
  2. TACROLIMUS. [Suspect]
     Active Substance: TACROLIMUS
     Indication: LIVER TRANSPLANT REJECTION
     Dosage: UNK UNK, UNKNOWN FREQ. (CONCENTRATION OF TACROLIMUS WAS MAINTAINED AT ABOUT 10.0UG/L)
     Route: 065
     Dates: start: 2016, end: 2016

REACTIONS (14)
  - Post transplant lymphoproliferative disorder [Recovering/Resolving]
  - Intra-abdominal fluid collection [Unknown]
  - Haemorrhage [Unknown]
  - Epstein-Barr virus infection [Unknown]
  - Splenomegaly [Unknown]
  - Ileal perforation [Unknown]
  - Pseudomonas infection [Unknown]
  - Intestinal congestion [Unknown]
  - Peritonitis [Unknown]
  - Klebsiella infection [Unknown]
  - Abdominal distension [Unknown]
  - Large intestine perforation [Unknown]
  - Diffuse large B-cell lymphoma [Recovering/Resolving]
  - Cryptosporidiosis infection [Unknown]

NARRATIVE: CASE EVENT DATE: 2016
